FAERS Safety Report 23729572 (Version 1)
Quarter: 2024Q2

REPORT INFORMATION
  Report Type: Spontaneous
  Country: SA (occurrence: SA)
  Receive Date: 20240410
  Receipt Date: 20240410
  Transmission Date: 20240715
  Serious: Yes (Death, Other)
  Sender: FDA-Public Use
  Company Number: SA-PFIZER INC-202400077730

PATIENT
  Age: 46 Year
  Sex: Male

DRUGS (1)
  1. CEFTAROLINE FOSAMIL [Suspect]
     Active Substance: CEFTAROLINE FOSAMIL
     Indication: Product used for unknown indication
     Dosage: 600 MG, 2X/DAY
     Route: 065

REACTIONS (1)
  - Death [Fatal]
